FAERS Safety Report 5260796-6 (Version None)
Quarter: 2007Q1

REPORT INFORMATION
  Report Type: 
  Country: None (occurrence: None)
  Receive Date: 20070309
  Receipt Date: 20070302
  Transmission Date: 20070707
  Serious: Yes (Other)
  Sender: FDA-Public Use
  Company Number: US-JNJFOC-20070301081

PATIENT
  Sex: Male
  Weight: 78.47 kg

DRUGS (6)
  1. TYLENOL (CAPLET) [Suspect]
  2. TYLENOL (CAPLET) [Suspect]
     Indication: ARTHRALGIA
     Dosage: ^QUITE SOMETIME^
  3. AMINOCAPROIC ACID [Concomitant]
     Indication: DYSPHAGIA
  4. ZOCOR [Concomitant]
     Indication: BLOOD CHOLESTEROL INCREASED
  5. OMEPRAZOLE [Concomitant]
     Indication: GASTROOESOPHAGEAL REFLUX DISEASE
  6. PROSCAR [Concomitant]
     Indication: PROSTATIC DISORDER

REACTIONS (1)
  - BLOOD URINE PRESENT [None]
